FAERS Safety Report 10356837 (Version 2)
Quarter: 2014Q3

REPORT INFORMATION
  Report Type: Spontaneous
  Country: SG (occurrence: SG)
  Receive Date: 20140801
  Receipt Date: 20140905
  Transmission Date: 20150326
  Serious: Yes (Death)
  Sender: FDA-Public Use
  Company Number: PHHY2014SG092921

PATIENT
  Sex: Female
  Weight: 3.15 kg

DRUGS (8)
  1. TOCILIZUMAB [Suspect]
     Active Substance: TOCILIZUMAB
     Indication: IMMUNOSUPPRESSION
  2. ETANERCEPT [Suspect]
     Active Substance: ETANERCEPT
     Indication: IMMUNOSUPPRESSION
  3. CICLOSPORIN [Suspect]
     Active Substance: CYCLOSPORINE
     Indication: IMMUNOSUPPRESSION
  4. METHYLPREDNISOLON//METHYLPREDNISOLONE SODIUM SUCCINATE [Concomitant]
     Indication: ARTHRITIS
     Route: 041
  5. THALIDOMIDE [Suspect]
     Active Substance: THALIDOMIDE
     Indication: IMMUNOSUPPRESSION
  6. ANAKINRA [Suspect]
     Active Substance: ANAKINRA
     Indication: IMMUNOSUPPRESSION
  7. ACZ885 [Suspect]
     Active Substance: CANAKINUMAB
     Indication: IMMUNOSUPPRESSION
  8. IRON SUPPLEMENTS [Concomitant]
     Active Substance: IRON
     Indication: HAEMOGLOBIN DECREASED

REACTIONS (2)
  - Drug ineffective [Unknown]
  - Death [Fatal]
